FAERS Safety Report 23453342 (Version 2)
Quarter: 2024Q1

REPORT INFORMATION
  Report Type: Spontaneous
  Country: IT (occurrence: IT)
  Receive Date: 20240129
  Receipt Date: 20240311
  Transmission Date: 20240409
  Serious: Yes (Other)
  Sender: FDA-Public Use
  Company Number: IT-TEVA-VS-3136516

PATIENT
  Age: 55 Year
  Sex: Female

DRUGS (3)
  1. LETROZOLE [Suspect]
     Active Substance: LETROZOLE
     Indication: Breast cancer
     Route: 065
     Dates: start: 201905
  2. RIBOCICLIB [Interacting]
     Active Substance: RIBOCICLIB
     Indication: Breast cancer
     Dosage: FROM DAY 1  TO 21, FOLLOWED BY A 7-DAY BREAK, ACCORDING TO A 28-DAY CYCLE
     Route: 065
     Dates: start: 202010, end: 2021
  3. RIBOCICLIB [Interacting]
     Active Substance: RIBOCICLIB
     Indication: Breast cancer
     Dosage: FROM DAY1  TO 21, FOLLOWED BY A 7-DAY BREAK, ACCORDING TO A 28-DAY CYCLE
     Route: 065
     Dates: start: 201905, end: 202010

REACTIONS (6)
  - Neutropenia [Recovering/Resolving]
  - Neutropenia [Recovering/Resolving]
  - Intentional product misuse [Recovering/Resolving]
  - Drug interaction [Recovering/Resolving]
  - Haematotoxicity [Recovered/Resolved]
  - Oedema peripheral [Unknown]

NARRATIVE: CASE EVENT DATE: 20201012
